FAERS Safety Report 22647111 (Version 1)
Quarter: 2023Q2

REPORT INFORMATION
  Report Type: Spontaneous
  Country: JP (occurrence: JP)
  Receive Date: 20230627
  Receipt Date: 20230627
  Transmission Date: 20230722
  Serious: Yes (Death, Other)
  Sender: FDA-Public Use
  Company Number: JP-Covis Pharma-18597

PATIENT
  Age: 64 Year
  Sex: Male

DRUGS (5)
  1. ALVESCO [Suspect]
     Active Substance: CICLESONIDE
     Indication: COVID-19
  2. FAVIPIRAVIR [Suspect]
     Active Substance: FAVIPIRAVIR
     Indication: COVID-19
  3. MEROPENEM [Suspect]
     Active Substance: MEROPENEM
     Indication: Thrombosis prophylaxis
  4. TEICOPLANIN [Suspect]
     Active Substance: TEICOPLANIN
     Indication: Thrombosis prophylaxis
  5. ENOXAPARIN SODIUM [Suspect]
     Active Substance: ENOXAPARIN SODIUM
     Indication: Anticoagulant therapy

REACTIONS (5)
  - Cerebral infarction [Fatal]
  - Renal infarct [Fatal]
  - Splenic infarction [Fatal]
  - COVID-19 [Fatal]
  - Drug ineffective for unapproved indication [Fatal]
